FAERS Safety Report 4750946-X (Version None)
Quarter: 2005Q3

REPORT INFORMATION
  Report Type: 
  Country: None (occurrence: None)
  Receive Date: 20050822
  Receipt Date: 20050110
  Transmission Date: 20060218
  Serious: Yes (Death, Life-Threatening, Other)
  Sender: FDA-Public Use
  Company Number: 2004118858

PATIENT

DRUGS (3)
  1. VIAGRA [Suspect]
     Indication: ILL-DEFINED DISORDER
  2. COCAINE (COCAINE) [Suspect]
     Indication: ILL-DEFINED DISORDER
  3. MARIJUANA (CANNABIS) [Suspect]
     Indication: ILL-DEFINED DISORDER

REACTIONS (2)
  - DRUG ABUSER [None]
  - DRUG INTERACTION [None]
